FAERS Safety Report 21174925 (Version 2)
Quarter: 2024Q3

REPORT INFORMATION
  Report Type: Spontaneous
  Country: US (occurrence: US)
  Receive Date: 20220805
  Receipt Date: 20240802
  Transmission Date: 20241017
  Serious: No
  Sender: ACCORD
  Company Number: US-Accord-247162

PATIENT
  Age: 35 Year
  Sex: Female
  Weight: 64 kg

DRUGS (9)
  1. DOCETAXEL [Suspect]
     Active Substance: DOCETAXEL\DOCETAXEL ANHYDROUS
     Indication: Breast cancer
     Dosage: G:123 MG
     Route: 042
     Dates: start: 20201105
  2. CYCLOPHOSPHAMIDE [Suspect]
     Active Substance: CYCLOPHOSPHAMIDE
     Indication: Breast cancer
     Dosage: G: 980 MG, 123 MG
     Route: 042
     Dates: start: 20201105
  3. NEULASTA [Suspect]
     Active Substance: PEGFILGRASTIM
     Indication: Breast cancer
     Dates: start: 20201105, end: 20210221
  4. DOCETAXEL [Suspect]
     Active Substance: DOCETAXEL\DOCETAXEL ANHYDROUS
     Indication: Breast cancer
     Dosage: G:123 MG
     Route: 042
     Dates: start: 20201127
  5. CYCLOPHOSPHAMIDE [Suspect]
     Active Substance: CYCLOPHOSPHAMIDE
     Indication: Breast cancer
     Dosage: G: 980 MG, 123 MG
     Route: 042
     Dates: start: 20201127
  6. DOCETAXEL [Suspect]
     Active Substance: DOCETAXEL\DOCETAXEL ANHYDROUS
     Indication: Breast cancer
     Dosage: G:123 MG
     Route: 042
     Dates: start: 20210119
  7. CYCLOPHOSPHAMIDE [Suspect]
     Active Substance: CYCLOPHOSPHAMIDE
     Indication: Breast cancer
     Dosage: G: 980 MG, 123 MG
     Route: 042
     Dates: start: 20210119
  8. DOCETAXEL [Suspect]
     Active Substance: DOCETAXEL\DOCETAXEL ANHYDROUS
     Indication: Breast cancer
     Dosage: G:123 MG
     Route: 042
     Dates: start: 20210211
  9. CYCLOPHOSPHAMIDE [Suspect]
     Active Substance: CYCLOPHOSPHAMIDE
     Indication: Breast cancer
     Dosage: G: 980 MG, 123 MG
     Route: 042
     Dates: start: 20210211

REACTIONS (3)
  - Keratitis [Unknown]
  - Optic disc drusen [Unknown]
  - Lacrimation increased [Not Recovered/Not Resolved]

NARRATIVE: CASE EVENT DATE: 20200101
